FAERS Safety Report 4286980-6 (Version None)
Quarter: 2004Q1

REPORT INFORMATION
  Report Type: 
  Country: None (occurrence: None)
  Receive Date: 20040204
  Receipt Date: 20040123
  Transmission Date: 20041129
  Serious: Yes (Death, Hospitalization)
  Sender: FDA-Public Use
  Company Number: 204447

PATIENT
  Age: 75 Year
  Sex: Male
  Weight: 84 kg

DRUGS (7)
  1. MABTHERA(RITUXIMAB) CONC FOR SOLUTION FOR INFUSION [Suspect]
     Indication: LYMPHOMA
     Dosage: 730 MG, Q3W, INTRAVENOUS
     Route: 042
     Dates: start: 20030925, end: 20031115
  2. DOXORUBICIN HCL [Suspect]
     Indication: LYMPHOMA
     Dosage: 47.5 MG, Q3W, INTRAVENOUS
     Route: 042
     Dates: start: 20030925, end: 20031115
  3. CYCLOPHOSPHAMIDE(CYCLOPHOSPHAMIDE) [Suspect]
     Indication: LYMPHOMA
     Dosage: 1460 MG, Q3W, INTRAVENOUS
     Route: 042
     Dates: start: 20030925, end: 20031115
  4. VINCRISTINE [Suspect]
     Indication: LYMPHOMA
     Dosage: 2 MG, Q3W, INTRAVENOUS
     Route: 042
     Dates: start: 20030925, end: 20031115
  5. PREDNISONE [Suspect]
     Indication: LYMPHOMA
     Dosage: 100 MG, QDX5D/21DC, ORAL
     Route: 048
     Dates: start: 20030925, end: 20031119
  6. ROCEPHIN [Concomitant]
  7. CIPROFLOXACIN [Concomitant]

REACTIONS (1)
  - PNEUMONIA [None]
